FAERS Safety Report 8249339-2 (Version None)
Quarter: 2012Q2

REPORT INFORMATION
  Report Type: 
  Country: None (occurrence: None)
  Receive Date: 20120402
  Receipt Date: 20120319
  Transmission Date: 20120825
  Serious: Yes (Hospitalization)
  Sender: FDA-Public Use
  Company Number: NL-JNJFOC-20080303182

PATIENT
  Sex: Female
  Weight: 70 kg

DRUGS (10)
  1. ENTOCORT EC [Concomitant]
     Indication: CROHN'S DISEASE
  2. REMICADE [Suspect]
     Indication: CROHN'S DISEASE
     Route: 042
     Dates: start: 20070502
  3. REMICADE [Suspect]
     Route: 042
     Dates: start: 20051011
  4. FOLIC ACID [Concomitant]
     Indication: CROHN'S DISEASE
  5. ACTONEL [Concomitant]
     Indication: OSTEOPOROSIS PROPHYLAXIS
  6. REMICADE [Suspect]
     Route: 042
     Dates: start: 20070416
  7. REMICADE [Suspect]
     Route: 042
     Dates: start: 20050816
  8. CALCIUM CARBONATE [Concomitant]
     Indication: OSTEOPOROSIS PROPHYLAXIS
  9. REMICADE [Suspect]
     Route: 042
     Dates: start: 20051229
  10. REMICADE [Suspect]
     Route: 042
     Dates: start: 20050720

REACTIONS (8)
  - CAECUM OPERATION [None]
  - ENTEROSTOMY [None]
  - INFECTIOUS PERITONITIS [None]
  - SOPOR [None]
  - INTESTINAL RESECTION [None]
  - ADHESION [None]
  - DRUG HYPERSENSITIVITY [None]
  - SEPSIS [None]
